FAERS Safety Report 23748496 (Version 10)
Quarter: 2025Q1

REPORT INFORMATION
  Report Type: Spontaneous
  Country: US (occurrence: US)
  Receive Date: 20240416
  Receipt Date: 20250206
  Transmission Date: 20250409
  Serious: Yes (Other)
  Sender: PFIZER
  Company Number: US-PFIZER INC-202400085287

PATIENT
  Age: 69 Year
  Sex: Male
  Weight: 74.84 kg

DRUGS (11)
  1. VELSIPITY [Suspect]
     Active Substance: ETRASIMOD ARGININE
     Indication: Crohn^s disease
     Dosage: TAKE 2 MG BY MOUTH DAILY
     Route: 048
  2. VELSIPITY [Suspect]
     Active Substance: ETRASIMOD ARGININE
     Indication: Irritable bowel syndrome
     Dosage: 2 MG, 1X/DAY
     Route: 048
     Dates: start: 202403
  3. VELSIPITY [Suspect]
     Active Substance: ETRASIMOD ARGININE
     Indication: Autoimmune disorder
     Dosage: TAKES 2 MG BY MOUTH DAILY
     Route: 048
     Dates: start: 20240415
  4. VELSIPITY [Suspect]
     Active Substance: ETRASIMOD ARGININE
     Indication: Colitis ulcerative
  5. VELSIPITY [Suspect]
     Active Substance: ETRASIMOD ARGININE
     Indication: Large intestine polyp
  6. DEXTRIN\WHEAT [Concomitant]
     Active Substance: ICODEXTRIN\WHEAT
     Dosage: TAKES 2 TEASPOON ONCE DAILY
  7. CYANOCOBALAMIN [Concomitant]
     Active Substance: CYANOCOBALAMIN
     Route: 048
  8. FERROUS SULFATE [Concomitant]
     Active Substance: FERROUS SULFATE
     Dosage: TAKE 1 TABLET (325 MG TOTAL) BY MOUTH DAILY WITH BREAKFAST
     Route: 048
  9. FIBER THERAPY (CALCIUM POLYCARBOPHIL) [Concomitant]
     Active Substance: CALCIUM POLYCARBOPHIL
     Dosage: TAKES 2 TEASPOON ONCE DAILY
     Route: 048
  10. IRON [Concomitant]
     Active Substance: IRON
  11. KENALOG [Concomitant]
     Active Substance: TRIAMCINOLONE ACETONIDE
     Route: 014
     Dates: start: 20220304

REACTIONS (9)
  - Retinal tear [Recovered/Resolved]
  - Lacrimation increased [Recovered/Resolved]
  - Decreased appetite [Recovered/Resolved]
  - Weight increased [Recovered/Resolved]
  - Abdominal pain upper [Recovered/Resolved]
  - Hunger [Recovered/Resolved]
  - Eye disorder [Recovered/Resolved]
  - Condition aggravated [Unknown]
  - Stress [Unknown]

NARRATIVE: CASE EVENT DATE: 20240801
